FAERS Safety Report 11332409 (Version 1)
Quarter: 2015Q3

REPORT INFORMATION
  Report Type: Spontaneous
  Country: US (occurrence: US)
  Receive Date: 20150803
  Receipt Date: 20150803
  Transmission Date: 20151125
  Serious: No
  Sender: FDA-Public Use
  Company Number: US-ELI_LILLY_AND_COMPANY-US200810000202

PATIENT
  Sex: Female

DRUGS (1)
  1. ZYPREXA [Suspect]
     Active Substance: OLANZAPINE
     Indication: AFFECTIVE DISORDER
     Dosage: 5 MG, DAILY (1/D)
     Dates: start: 2003

REACTIONS (9)
  - Feeling cold [Unknown]
  - Dry mouth [Unknown]
  - Oropharyngeal pain [Unknown]
  - Dyskinesia [Unknown]
  - Sensory disturbance [Unknown]
  - Dysphagia [Unknown]
  - Anxiety [Unknown]
  - Insomnia [Unknown]
  - Weight increased [Unknown]

NARRATIVE: CASE EVENT DATE: 2006
